FAERS Safety Report 9222977 (Version 1)
Quarter: 2013Q2

REPORT INFORMATION
  Report Type: Spontaneous
  Country: AU (occurrence: AU)
  Receive Date: 20130410
  Receipt Date: 20130410
  Transmission Date: 20140414
  Serious: Yes (Death)
  Sender: FDA-Public Use
  Company Number: AU-ROCHE-1210384

PATIENT
  Age: 54 Year
  Sex: Female

DRUGS (4)
  1. XELODA [Suspect]
     Indication: PRODUCT USED FOR UNKNOWN INDICATION
     Route: 065
     Dates: start: 20120206
  2. TYKERB [Suspect]
     Indication: PRODUCT USED FOR UNKNOWN INDICATION
     Route: 065
     Dates: start: 20120209
  3. PARACETAMOL/CODEINE PHOSPHATE [Concomitant]
  4. PARACETAMOL [Concomitant]

REACTIONS (5)
  - Metastatic neoplasm [Fatal]
  - Swollen tongue [Fatal]
  - Rash [Fatal]
  - Disease progression [Fatal]
  - Back pain [Fatal]
